FAERS Safety Report 15268742 (Version 1)
Quarter: 2018Q3

REPORT INFORMATION
  Report Type: Report from Study
  Country: US (occurrence: US)
  Receive Date: 20180813
  Receipt Date: 20180813
  Transmission Date: 20181010
  Serious: Yes (Other)
  Sender: FDA-Public Use
  Company Number: US-BRISTOL-MYERS SQUIBB COMPANY-BMS-2018-074160

PATIENT
  Age: 71 Year
  Sex: Male

DRUGS (5)
  1. ABATACEPT [Suspect]
     Active Substance: ABATACEPT
     Indication: RHEUMATOID ARTHRITIS
     Dosage: 750 MG, Q4WK
     Route: 042
     Dates: start: 201601
  2. PLAVIX [Concomitant]
     Active Substance: CLOPIDOGREL BISULFATE
     Indication: PRODUCT USED FOR UNKNOWN INDICATION
     Route: 065
  3. PLAQUENIL                          /00072602/ [Concomitant]
     Active Substance: HYDROXYCHLOROQUINE DIPHOSPHATE
     Indication: PRODUCT USED FOR UNKNOWN INDICATION
     Route: 065
  4. ARAVA [Concomitant]
     Active Substance: LEFLUNOMIDE
     Indication: PRODUCT USED FOR UNKNOWN INDICATION
     Route: 065
  5. TRAMADOL. [Concomitant]
     Active Substance: TRAMADOL
     Indication: PRODUCT USED FOR UNKNOWN INDICATION
     Route: 065

REACTIONS (13)
  - Cardiac failure congestive [Not Recovered/Not Resolved]
  - Ataxia [Unknown]
  - Sinusitis [Unknown]
  - Ventricular arrhythmia [Recovered/Resolved]
  - Bradycardia [Recovered/Resolved]
  - Bronchitis [Unknown]
  - Syncope [Recovered/Resolved]
  - Dizziness [Unknown]
  - Nausea [Unknown]
  - Coronary artery disease [Unknown]
  - Prostate cancer [Unknown]
  - Herpes zoster [Unknown]
  - Carotid artery disease [Unknown]

NARRATIVE: CASE EVENT DATE: 20160816
